FAERS Safety Report 10519809 (Version 1)
Quarter: 2014Q4

REPORT INFORMATION
  Report Type: Spontaneous
  Country: US (occurrence: None)
  Receive Date: 20141014
  Receipt Date: 20141014
  Transmission Date: 20150528
  Serious: No
  Sender: FDA-Public Use
  Company Number: None

PATIENT
  Age: 61 Year
  Sex: Male
  Weight: 94.35 kg

DRUGS (11)
  1. FLUTICASONE (FLONASE) [Concomitant]
  2. ATENOLOL (TENORMIN) [Concomitant]
  3. TIOTROPIUM (SPIRIVA WITH HANDIHALER) [Concomitant]
  4. AMLODIPINE (NORVASC) [Concomitant]
  5. LOSARTAN (COZAAR) [Concomitant]
  6. ALBUTEROL (PROAIR MFA) [Concomitant]
  7. REVLIMID [Suspect]
     Active Substance: LENALIDOMIDE
     Indication: PLASMA CELL MYELOMA
     Route: 048
     Dates: start: 201408
  8. MOMETASONE-FORMOTEROL (DULERA) [Concomitant]
  9. SIMVASTATIN (ZOCOR) [Concomitant]
  10. DEXAMETHASONE (DECADRON) [Concomitant]
  11. CLONIDINE HCL (CATAPRES) [Concomitant]

REACTIONS (4)
  - Asthenia [None]
  - Fatigue [None]
  - Nocturia [None]
  - Oedema peripheral [None]

NARRATIVE: CASE EVENT DATE: 20140912
